FAERS Safety Report 6667831-9 (Version None)
Quarter: 2010Q2

REPORT INFORMATION
  Report Type: 
  Country: None (occurrence: None)
  Receive Date: 20100405
  Receipt Date: 20100324
  Transmission Date: 20101027
  Serious: Yes (Other)
  Sender: FDA-Public Use
  Company Number: GB-PFIZER INC-2010037663

PATIENT
  Sex: Male

DRUGS (1)
  1. XALATAN [Suspect]
     Dosage: UNK
     Route: 047
     Dates: start: 20091201

REACTIONS (4)
  - EYE IRRITATION [None]
  - FOREIGN BODY SENSATION IN EYES [None]
  - HYPERSENSITIVITY [None]
  - OCULAR HYPERAEMIA [None]
